FAERS Safety Report 20101688 (Version 1)
Quarter: 2021Q4

REPORT INFORMATION
  Report Type: Spontaneous
  Country: US (occurrence: None)
  Receive Date: 20211122
  Receipt Date: 20211122
  Transmission Date: 20220303
  Serious: Yes (Other)
  Sender: FDA-Public Use
  Company Number: None

PATIENT
  Age: 73 Year
  Sex: Male
  Weight: 83.3 kg

DRUGS (1)
  1. FERAHEME [Suspect]
     Active Substance: FERUMOXYTOL NON-STOICHIOMETRIC MAGNETITE
     Indication: Iron deficiency anaemia
     Dosage: FREQUENCY : AS NEEDED;?
     Route: 041
     Dates: start: 20211028, end: 20211028

REACTIONS (2)
  - Infusion related reaction [None]
  - Muscle spasms [None]

NARRATIVE: CASE EVENT DATE: 20211028
